FAERS Safety Report 7960612-5 (Version None)
Quarter: 2011Q4

REPORT INFORMATION
  Report Type: 
  Country: None (occurrence: None)
  Receive Date: 20111206
  Receipt Date: 20111201
  Transmission Date: 20120403
  Serious: Yes (Disabling, Other)
  Sender: FDA-Public Use
  Company Number: US-MERCK-1103USA03950

PATIENT
  Age: 66 Year
  Sex: Female
  Weight: 70 kg

DRUGS (5)
  1. FOSAMAX [Suspect]
     Route: 048
     Dates: start: 20080109
  2. MULTIVITAMIN [Concomitant]
     Route: 065
  3. CALCIUM (UNSPECIFIED) [Concomitant]
     Route: 065
  4. FOSAMAX [Suspect]
     Indication: OSTEOPOROSIS
     Route: 048
     Dates: start: 20000101, end: 20100101
  5. FOSAMAX PLUS D [Suspect]
     Indication: OSTEOPOROSIS
     Route: 048
     Dates: start: 20070401

REACTIONS (27)
  - BACK PAIN [None]
  - HYPERCALCAEMIA [None]
  - MUSCLE RUPTURE [None]
  - CARPAL TUNNEL SYNDROME [None]
  - RETINAL DETACHMENT [None]
  - ADVERSE DRUG REACTION [None]
  - OSTEOPENIA [None]
  - NOCTURIA [None]
  - CARDIAC MURMUR [None]
  - BRONCHITIS [None]
  - BONE DISORDER [None]
  - ARTHRITIS [None]
  - TOOTH DISORDER [None]
  - TENDONITIS [None]
  - EXTRASYSTOLES [None]
  - NAUSEA [None]
  - CONSTIPATION [None]
  - BLOOD CREATININE INCREASED [None]
  - FEMUR FRACTURE [None]
  - CATARACT [None]
  - INAPPROPRIATE SCHEDULE OF DRUG ADMINISTRATION [None]
  - HYPERLIPIDAEMIA [None]
  - VOMITING [None]
  - SIALOADENITIS [None]
  - FALL [None]
  - PAIN IN EXTREMITY [None]
  - OSTEOARTHRITIS [None]
